FAERS Safety Report 14201962 (Version 1)
Quarter: 2017Q4

REPORT INFORMATION
  Report Type: Spontaneous
  Country: US (occurrence: US)
  Receive Date: 20171117
  Receipt Date: 20171117
  Transmission Date: 20180321
  Serious: Yes (Hospitalization)
  Sender: FDA-Public Use
  Company Number: US-009507513-1711USA006191

PATIENT
  Age: 72 Year
  Sex: Male
  Weight: 113.4 kg

DRUGS (6)
  1. DEXAMETHASONE. [Suspect]
     Active Substance: DEXAMETHASONE
     Indication: PLASMA CELL MYELOMA
     Dosage: 4 MG, DAY 2-3,9-10,16-17, 23-24 CYCLE 1-2
     Route: 048
     Dates: start: 20170524, end: 20170530
  2. CRESTOR [Concomitant]
     Active Substance: ROSUVASTATIN CALCIUM
  3. GABAPENTIN. [Concomitant]
     Active Substance: GABAPENTIN
  4. DARATUMUMAB [Suspect]
     Active Substance: DARATUMUMAB
     Indication: PLASMA CELL MYELOMA
     Dosage: 16 MG/KG, QW
     Route: 042
     Dates: start: 20170524, end: 20170530
  5. ELIQUIS [Concomitant]
     Active Substance: APIXABAN
  6. FLEXERIL [Concomitant]
     Active Substance: CYCLOBENZAPRINE HYDROCHLORIDE

REACTIONS (1)
  - Muscular weakness [Not Recovered/Not Resolved]

NARRATIVE: CASE EVENT DATE: 20170530
